FAERS Safety Report 16451352 (Version 1)
Quarter: 2019Q2

REPORT INFORMATION
  Report Type: Spontaneous
  Country: US (occurrence: US)
  Receive Date: 20190619
  Receipt Date: 20190619
  Transmission Date: 20190711
  Serious: No
  Sender: FDA-Public Use
  Company Number: US-PFIZER INC-2019256437

PATIENT
  Age: 52 Year
  Sex: Female

DRUGS (1)
  1. LYRICA [Suspect]
     Active Substance: PREGABALIN
     Dosage: 75 MG, 2X/DAY [75 MG, ONE TWICE A DAY]
     Route: 048

REACTIONS (2)
  - Oral discomfort [Unknown]
  - Pain [Unknown]

NARRATIVE: CASE EVENT DATE: 20190608
